FAERS Safety Report 5301156-9 (Version None)
Quarter: 2007Q2

REPORT INFORMATION
  Report Type: 
  Country: None (occurrence: None)
  Receive Date: 20070418
  Receipt Date: 20070406
  Transmission Date: 20071010
  Serious: Yes (Hospitalization)
  Sender: FDA-Public Use
  Company Number: FRWYE342626OCT06

PATIENT
  Age: 39 Year
  Sex: Female

DRUGS (1)
  1. ENBREL [Suspect]
     Indication: SPONDYLOARTHROPATHY
     Route: 058
     Dates: start: 20061001, end: 20061008

REACTIONS (3)
  - CONDITION AGGRAVATED [None]
  - ENTEROCOLITIS HAEMORRHAGIC [None]
  - PROCTOCOLITIS [None]
